FAERS Safety Report 5358353-6 (Version None)
Quarter: 2007Q2

REPORT INFORMATION
  Report Type: 
  Country: None (occurrence: None)
  Receive Date: 20070530
  Receipt Date: 20070125
  Transmission Date: 20071010
  Serious: Yes (Other)
  Sender: FDA-Public Use
  Company Number: US200601001621

PATIENT
  Age: 41 Year
  Sex: Male
  Weight: 79.4 kg

DRUGS (11)
  1. ZYPREXA [Suspect]
     Indication: DEPRESSION
     Dosage: 10 MG, EACH EVENING, ORAL
     Route: 048
     Dates: start: 20010101
  2. REMERON [Concomitant]
  3. CELEXA [Concomitant]
  4. NORVASC [Concomitant]
  5. TRAZODONE HCL [Concomitant]
  6. WELLBUTRIN SR [Concomitant]
  7. DILTIAZEMI HYDROCHLORIDUM [Concomitant]
  8. PROTONIX [Concomitant]
  9. LEXAPRO [Concomitant]
  10. PREDNISONE [Concomitant]
  11. SULINDAC [Concomitant]

REACTIONS (1)
  - PANCREATITIS [None]
